FAERS Safety Report 9975023 (Version 1)
Quarter: 2014Q1

REPORT INFORMATION
  Report Type: Report from Study
  Country: US (occurrence: US)
  Receive Date: 20140306
  Receipt Date: 20140306
  Transmission Date: 20141002
  Serious: No
  Sender: FDA-Public Use
  Company Number: US-ABBVIE-13P-163-1160917-00

PATIENT
  Sex: Female

DRUGS (2)
  1. HUMIRA [Suspect]
     Indication: PSORIATIC ARTHROPATHY
     Route: 058
     Dates: start: 20121228, end: 201308
  2. HUMIRA [Suspect]
     Route: 058
     Dates: start: 201309

REACTIONS (6)
  - Abdominal distension [Unknown]
  - Furuncle [Unknown]
  - Nasopharyngitis [Unknown]
  - Rash [Unknown]
  - Retching [Unknown]
  - Localised infection [Unknown]
